FAERS Safety Report 18729811 (Version 2)
Quarter: 2021Q1

REPORT INFORMATION
  Report Type: Spontaneous
  Country: US (occurrence: US)
  Receive Date: 20210112
  Receipt Date: 20210119
  Transmission Date: 20210419
  Serious: Yes (Death, Hospitalization)
  Sender: FDA-Public Use
  Company Number: US-PFIZER INC-2021014296

PATIENT
  Age: 29 Year
  Sex: Male

DRUGS (5)
  1. BUPRENORPHINE. [Suspect]
     Active Substance: BUPRENORPHINE
     Dosage: UNK (INGESTION)
     Route: 048
  2. OXYCODONE [Suspect]
     Active Substance: OXYCODONE
     Dosage: UNK (INGESTION)
     Route: 048
  3. ALPRAZOLAM. [Suspect]
     Active Substance: ALPRAZOLAM
     Dosage: UNK (INGESTION)
     Route: 048
  4. YOHIMBINE [Suspect]
     Active Substance: YOHIMBINE
     Dosage: UNK (INGESTION)
     Route: 048
  5. MITRAGYNA SPECIOSA [Suspect]
     Active Substance: HERBALS\MITRAGYNINE
     Dosage: UNK (INGESTION)
     Route: 048

REACTIONS (2)
  - Cardiac arrest [Fatal]
  - Respiratory arrest [Fatal]

NARRATIVE: CASE EVENT DATE: 2019
